FAERS Safety Report 25861546 (Version 2)
Quarter: 2025Q4

REPORT INFORMATION
  Report Type: Report from Study
  Country: US (occurrence: US)
  Receive Date: 20250930
  Receipt Date: 20251104
  Transmission Date: 20260119
  Serious: Yes (Other)
  Sender: ABBVIE
  Company Number: US-ABBVIE-6476220

PATIENT
  Age: 25 Year
  Sex: Female

DRUGS (5)
  1. RINVOQ [Suspect]
     Active Substance: UPADACITINIB
     Indication: Rheumatoid arthritis
     Dosage: FORM STRENGTH: 15 MILLIGRAM
     Route: 048
     Dates: start: 20250414
  2. TOPIRAMATE [Concomitant]
     Active Substance: TOPIRAMATE
     Indication: Migraine
  3. METFORMIN [Concomitant]
     Active Substance: METFORMIN HYDROCHLORIDE
     Indication: Weight decreased
  4. DOXEPIN [Concomitant]
     Active Substance: DOXEPIN
     Indication: Insomnia
  5. CLONIDINE [Concomitant]
     Active Substance: CLONIDINE
     Indication: Nightmare

REACTIONS (7)
  - Abortion spontaneous [Unknown]
  - Pelvic pain [Not Recovered/Not Resolved]
  - Ectopic pregnancy [Unknown]
  - Maternal exposure during pregnancy [Unknown]
  - Vaginal haemorrhage [Recovered/Resolved]
  - Human chorionic gonadotropin decreased [Recovered/Resolved]
  - Polycystic ovarian syndrome [Not Recovered/Not Resolved]

NARRATIVE: CASE EVENT DATE: 20250101
